FAERS Safety Report 10748927 (Version 1)
Quarter: 2015Q1

REPORT INFORMATION
  Report Type: Spontaneous
  Country: US (occurrence: None)
  Receive Date: 20150128
  Receipt Date: 20150128
  Transmission Date: 20150721
  Serious: Yes (Other)
  Sender: FDA-Public Use
  Company Number: None

PATIENT
  Age: 69 Year
  Sex: Male
  Weight: 95.26 kg

DRUGS (1)
  1. ZETIA [Suspect]
     Active Substance: EZETIMIBE
     Indication: DRUG THERAPY
     Dosage: 30 DAYS, ONCE DAILY
     Dates: start: 20141220, end: 20150127

REACTIONS (2)
  - Memory impairment [None]
  - Abnormal dreams [None]

NARRATIVE: CASE EVENT DATE: 20141220
